FAERS Safety Report 12640563 (Version 1)
Quarter: 2016Q3

REPORT INFORMATION
  Report Type: Spontaneous
  Country: FR (occurrence: FR)
  Receive Date: 20160810
  Receipt Date: 20160810
  Transmission Date: 20161109
  Serious: Yes (Hospitalization, Other)
  Sender: FDA-Public Use
  Company Number: FR-PFIZER INC-2016365725

PATIENT
  Age: 67 Year
  Sex: Male

DRUGS (7)
  1. ETOPOSIDE MYLAN [Suspect]
     Active Substance: ETOPOSIDE
     Indication: B-CELL LYMPHOMA
     Dosage: 534 MG (178 MG X 3), CYCLIC
     Route: 042
     Dates: start: 20160309, end: 20160329
  2. IFOSFAMIDE EG [Suspect]
     Active Substance: IFOSFAMIDE
     Indication: B-CELL LYMPHOMA
     Dosage: 8840 MG, CYCLIC
     Route: 042
     Dates: start: 20160309, end: 20160329
  3. ZOPHREN /00955301/ [Concomitant]
     Active Substance: ONDANSETRON
     Dosage: FROM DAY  DAY 6
  4. CARBOPLATINE HOSPIRA [Suspect]
     Active Substance: CARBOPLATIN
     Indication: B-CELL LYMPHOMA
     Dosage: 4710 MG, CYCLIC
     Route: 042
     Dates: start: 20160309, end: 20160329
  5. KEPPRA [Concomitant]
     Active Substance: LEVETIRACETAM
     Dosage: 500 MG, 2X/DAY
  6. GRANOCYTE [Concomitant]
     Active Substance: LENOGRASTIM
     Dosage: UNK UNK, 1X/DAY
     Dates: start: 20160406, end: 20160408
  7. GRANOCYTE [Concomitant]
     Active Substance: LENOGRASTIM
     Dosage: UNK UNK, 2X/DAY
     Dates: start: 20160409

REACTIONS (2)
  - Encephalopathy [Recovered/Resolved]
  - Haemoglobin decreased [Recovering/Resolving]

NARRATIVE: CASE EVENT DATE: 20160311
